FAERS Safety Report 16756421 (Version 1)
Quarter: 2019Q3

REPORT INFORMATION
  Report Type: Spontaneous
  Country: GB (occurrence: GB)
  Receive Date: 20190829
  Receipt Date: 20190829
  Transmission Date: 20191005
  Serious: Yes (Life-Threatening, Hospitalization, Other)
  Sender: FDA-Public Use
  Company Number: GB-MYLANLABS-2019M1081128

PATIENT
  Age: 88 Year
  Sex: Male
  Weight: 87.59 kg

DRUGS (3)
  1. NAPROXEN. [Suspect]
     Active Substance: NAPROXEN
     Indication: GOUT
     Dosage: 500 MILLIGRAM, QD
     Route: 048
     Dates: start: 20181119, end: 20181209
  2. LEUPRORELIN [Concomitant]
     Active Substance: LEUPROLIDE ACETATE
     Dosage: 11.25 MILLIGRAM (3 MINUTES)
     Dates: start: 20190122
  3. CHLORAMPHENICOL [Concomitant]
     Active Substance: CHLORAMPHENICOL
     Dosage: FOR 5 DAYS.
     Dates: start: 20190301

REACTIONS (3)
  - Gastric ulcer haemorrhage [Recovered/Resolved]
  - Embolism arterial [Unknown]
  - Gastrointestinal haemorrhage [Unknown]

NARRATIVE: CASE EVENT DATE: 20181209
